FAERS Safety Report 5688838-4 (Version None)
Quarter: 2008Q1

REPORT INFORMATION
  Report Type: 
  Country: None (occurrence: None)
  Receive Date: 20080331
  Receipt Date: 20040202
  Transmission Date: 20080703
  Serious: Yes (Death)
  Sender: FDA-Public Use
  Company Number: JP-ROCHE-357834

PATIENT
  Age: 57 Year
  Sex: Male

DRUGS (1)
  1. TAMIFLU [Suspect]
     Dosage: DOSING REGIMEN REPORTED AS 75MG
     Route: 048
     Dates: start: 20040128, end: 20040128

REACTIONS (1)
  - DEATH [None]
